FAERS Safety Report 9326651 (Version 1)
Quarter: 2013Q2

REPORT INFORMATION
  Report Type: Spontaneous
  Country: TW (occurrence: None)
  Receive Date: 20130530
  Receipt Date: 20130530
  Transmission Date: 20140414
  Serious: Yes (Other)
  Sender: FDA-Public Use
  Company Number: SYM-2013-04050

PATIENT
  Sex: 0

DRUGS (3)
  1. FLUOROURACIL [Suspect]
     Dosage: 800 MG/M2, DAILY, INTRAVENOUS (NOT OTHERWISE SPECIFIED)
     Route: 042
  2. CISPLATIN [Suspect]
     Dosage: 20 MG/M2, DAILY, INTRAVENOUS (NOT OTHERWISE SPECIFIED)
     Route: 042
  3. THERAPEUTIC RADIOPHARMACEUTICALS (THERAPEUTIC RADIOPHARMACEUTICALS) [Suspect]

REACTIONS (2)
  - Nausea [None]
  - Vomiting [None]
